FAERS Safety Report 25668647 (Version 1)
Quarter: 2025Q3

REPORT INFORMATION
  Report Type: Spontaneous
  Country: US (occurrence: US)
  Receive Date: 20250812
  Receipt Date: 20250812
  Transmission Date: 20251020
  Serious: Yes (Other)
  Sender: BRISTOL-MYERS SQUIBB COMPANY
  Company Number: US-BRISTOL-MYERS SQUIBB COMPANY-2025-111582

PATIENT
  Age: 67 Year
  Sex: Female
  Weight: 83.01 kg

DRUGS (1)
  1. REVLIMID [Suspect]
     Active Substance: LENALIDOMIDE
     Indication: Plasma cell myeloma
     Dosage: TAKE 10MG ONCE?DAILY FOR 7 DAYS,?THEN 7 DAYS OFF,?EVERY 14 DAYS.
     Route: 048

REACTIONS (1)
  - Pericarditis [Recovering/Resolving]
